FAERS Safety Report 16461591 (Version 2)
Quarter: 2019Q3

REPORT INFORMATION
  Report Type: Spontaneous
  Country: US (occurrence: US)
  Receive Date: 20190621
  Receipt Date: 20190729
  Transmission Date: 20191004
  Serious: No
  Sender: FDA-Public Use
  Company Number: US-GLAXOSMITHKLINE-US2019106076

PATIENT
  Age: 46 Year
  Sex: Female

DRUGS (1)
  1. BENLYSTA [Suspect]
     Active Substance: BELIMUMAB
     Indication: PRODUCT USED FOR UNKNOWN INDICATION
     Dosage: 200 MG/ML, UNK
     Route: 058
     Dates: start: 20190611

REACTIONS (7)
  - Malaise [Unknown]
  - Injection site erythema [Unknown]
  - Product dose omission [Unknown]
  - Injection site haemorrhage [Unknown]
  - Injection site bruising [Unknown]
  - Product complaint [Unknown]
  - Injection site pain [Unknown]

NARRATIVE: CASE EVENT DATE: 20190611
